FAERS Safety Report 16351358 (Version 2)
Quarter: 2019Q2

REPORT INFORMATION
  Report Type: Spontaneous
  Country: ES (occurrence: ES)
  Receive Date: 20190524
  Receipt Date: 20190527
  Transmission Date: 20190711
  Serious: Yes (Death)
  Sender: FDA-Public Use
  Company Number: ES-ABBVIE-19K-144-2741692-00

PATIENT
  Sex: Male

DRUGS (2)
  1. DECITABINE. [Concomitant]
     Active Substance: DECITABINE
     Indication: ACUTE MYELOID LEUKAEMIA
     Dates: start: 201903
  2. VENETOCLAX. [Suspect]
     Active Substance: VENETOCLAX
     Indication: ACUTE MYELOID LEUKAEMIA
     Route: 048
     Dates: start: 201903

REACTIONS (3)
  - Off label use [Unknown]
  - Infection [Unknown]
  - Death [Fatal]

NARRATIVE: CASE EVENT DATE: 2019
